FAERS Safety Report 4933901-6 (Version None)
Quarter: 2006Q1

REPORT INFORMATION
  Report Type: 
  Country: None (occurrence: None)
  Receive Date: 20060301
  Receipt Date: 20060216
  Transmission Date: 20060701
  Serious: Yes (Other)
  Sender: FDA-Public Use
  Company Number: 2006026966

PATIENT
  Age: 37 Year
  Sex: Male

DRUGS (8)
  1. ZYRTEC (TABLETS) (CETIRIZINE) [Suspect]
     Indication: ILL-DEFINED DISORDER
  2. XYREM [Suspect]
     Indication: CATAPLEXY
     Dosage: 5 GRAM (1 D), ORAL
     Route: 048
     Dates: start: 20050101
  3. XYREM [Suspect]
     Indication: NARCOLEPSY
     Dosage: 5 GRAM (1 D), ORAL
     Route: 048
     Dates: start: 20050101
  4. XYREM [Suspect]
     Indication: SLEEP PARALYSIS
     Dosage: 5 GRAM (1 D), ORAL
     Route: 048
     Dates: start: 20050101
  5. PROVIGIL [Concomitant]
  6. PROTONIX [Concomitant]
  7. ALBUTEROL [Concomitant]
  8. TRIAMCINOLONE ACETONIDE [Concomitant]

REACTIONS (4)
  - DYSPHONIA [None]
  - HAIR GROWTH ABNORMAL [None]
  - MUSCLE DISORDER [None]
  - WEIGHT DECREASED [None]
